FAERS Safety Report 12648659 (Version 1)
Quarter: 2016Q3

REPORT INFORMATION
  Report Type: Spontaneous
  Country: US (occurrence: US)
  Receive Date: 20160812
  Receipt Date: 20160812
  Transmission Date: 20161109
  Serious: Yes (Other)
  Sender: FDA-Public Use
  Company Number: US-ELI_LILLY_AND_COMPANY-US201608002639

PATIENT
  Sex: Female

DRUGS (1)
  1. PROZAC [Suspect]
     Active Substance: FLUOXETINE HYDROCHLORIDE
     Indication: PRODUCT USED FOR UNKNOWN INDICATION
     Dosage: 80 MG, UNKNOWN
     Route: 065

REACTIONS (8)
  - Anorgasmia [Unknown]
  - Nightmare [Unknown]
  - Vulvovaginal dryness [Unknown]
  - Suicidal ideation [Unknown]
  - Female sexual dysfunction [Unknown]
  - Intentional self-injury [Unknown]
  - Aggression [Unknown]
  - Breast atrophy [Unknown]
